FAERS Safety Report 5397578-0 (Version None)
Quarter: 2007Q3

REPORT INFORMATION
  Report Type: 
  Country: None (occurrence: None)
  Receive Date: 20070726
  Receipt Date: 20070717
  Transmission Date: 20080115
  Serious: Yes (Other)
  Sender: FDA-Public Use
  Company Number: CA-ROCHE-501087

PATIENT
  Age: 30 Year
  Sex: Female
  Weight: 61.2 kg

DRUGS (2)
  1. PEGASYS [Suspect]
     Indication: HEPATITIS C
     Dosage: STRENGTH: 180 MCG/0.5 ML. FORM: VIAL
     Route: 058
     Dates: start: 20070515, end: 20070605
  2. RIBAVIRIN [Suspect]
     Indication: HEPATITIS C
     Route: 048
     Dates: start: 20070515, end: 20070605

REACTIONS (1)
  - ABORTION SPONTANEOUS [None]
